FAERS Safety Report 4392185-0 (Version None)
Quarter: 2004Q3

REPORT INFORMATION
  Report Type: 
  Country: None (occurrence: None)
  Receive Date: 20040708
  Receipt Date: 20040331
  Transmission Date: 20050211
  Serious: Yes (Hospitalization, Other)
  Sender: FDA-Public Use
  Company Number: 200412423US

PATIENT
  Sex: Female

DRUGS (9)
  1. TAXOTERE [Suspect]
     Indication: BREAST CANCER
     Dates: start: 20040114, end: 20040226
  2. DOXORUBICIN [Suspect]
     Indication: BREAST CANCER
     Dates: start: 20040114, end: 20040226
  3. CYTOXAN [Suspect]
     Indication: BREAST CANCER
     Dates: start: 20040114, end: 20040226
  4. PEGFILGRASTIM [Concomitant]
  5. METFORMIN [Concomitant]
  6. EPOGEN [Concomitant]
  7. DEXAMETHASONE [Concomitant]
  8. GABAPENTIN [Concomitant]
  9. ROXICET [Concomitant]

REACTIONS (12)
  - ABASIA [None]
  - AUTOIMMUNE DISORDER [None]
  - BLOOD GLUCOSE ABNORMAL [None]
  - BLOOD MAGNESIUM ABNORMAL [None]
  - CHILLS [None]
  - DRUG TOXICITY [None]
  - MUSCLE NECROSIS [None]
  - MYOPATHY TOXIC [None]
  - PAIN IN EXTREMITY [None]
  - PYREXIA [None]
  - VASCULITIS [None]
  - WHITE BLOOD CELL COUNT INCREASED [None]
